FAERS Safety Report 13172505 (Version 1)
Quarter: 2017Q1

REPORT INFORMATION
  Report Type: Spontaneous
  Country: FR (occurrence: FR)
  Receive Date: 20170131
  Receipt Date: 20170131
  Transmission Date: 20170428
  Serious: Yes (Disabling)
  Sender: FDA-Public Use
  Company Number: FR-BAUSCH-BL-2017-002106

PATIENT
  Sex: Female

DRUGS (2)
  1. CARTEOL LP 1% COLLYRE ? LIB?RATION PROLONG?E [Suspect]
     Active Substance: CARTEOLOL HYDROCHLORIDE
     Indication: OCULAR HYPERTENSION
     Route: 047
     Dates: start: 201101, end: 20110624
  2. NO DRUG NAME [Suspect]
     Active Substance: UNSPECIFIED INGREDIENT

REACTIONS (1)
  - Corneal opacity [Not Recovered/Not Resolved]

NARRATIVE: CASE EVENT DATE: 2011
